FAERS Safety Report 21450664 (Version 4)
Quarter: 2022Q4

REPORT INFORMATION
  Report Type: Spontaneous
  Country: US (occurrence: US)
  Receive Date: 20221013
  Receipt Date: 20221107
  Transmission Date: 20230113
  Serious: No
  Sender: FDA-Public Use
  Company Number: US-PFIZER INC-202201154921

PATIENT
  Age: 69 Year
  Sex: Female

DRUGS (8)
  1. NICOTROL [Suspect]
     Active Substance: NICOTINE
     Indication: Smoking cessation therapy
     Dosage: UNK
     Route: 045
     Dates: start: 2021
  2. IBUPROFEN [Concomitant]
     Active Substance: IBUPROFEN
     Indication: Pain
     Dosage: UNK, AS NEEDED
  3. FLUOXETINE [Concomitant]
     Active Substance: FLUOXETINE HYDROCHLORIDE
     Dosage: 3 TIMES A DAY, DAILY MORNING ONLY
  4. CLONAZEPAM [Concomitant]
     Active Substance: CLONAZEPAM
     Dosage: 3 TIMES DAILY MORNING
  5. OXCARBAZEPINE CADISTA [Concomitant]
     Dosage: 300 MG, 2X/DAY
     Route: 048
  6. BUPROPION [Concomitant]
     Active Substance: BUPROPION
     Dosage: MORNING ONLY
  7. LUMATEPERONE [Concomitant]
     Active Substance: LUMATEPERONE
     Dosage: 1 CAPSULE DAILY
  8. VALBENAZINE [Concomitant]
     Active Substance: VALBENAZINE
     Dosage: UNK

REACTIONS (4)
  - Poor quality device used [Unknown]
  - Device delivery system issue [Unknown]
  - Device breakage [Unknown]
  - Device physical property issue [Unknown]
